FAERS Safety Report 7487903-9 (Version None)
Quarter: 2011Q2

REPORT INFORMATION
  Report Type: 
  Country: None (occurrence: None)
  Receive Date: 20110511
  Receipt Date: 20110428
  Transmission Date: 20111010
  Serious: Yes (Life-Threatening, Hospitalization)
  Sender: FDA-Public Use
  Company Number: 2009-0442

PATIENT
  Age: 54 Year
  Sex: Male

DRUGS (4)
  1. TAMSULOSIN HCL [Concomitant]
  2. DYSPORT (500 UNITES SPEYWOOD (DYSPORT) (BOTULINUM TOXIN TYPE A) (BOTUL [Suspect]
     Indication: OFF LABEL USE
     Dosage: 1000 UNITS (1000 UNITS, SINGLE CYCLE), PARENTERAL
     Route: 051
     Dates: start: 20090202, end: 20090202
  3. DYSPORT (500 UNITES SPEYWOOD (DYSPORT) (BOTULINUM TOXIN TYPE A) (BOTUL [Suspect]
     Indication: FOOT DEFORMITY
     Dosage: 1000 UNITS (1000 UNITS, SINGLE CYCLE), PARENTERAL
     Route: 051
     Dates: start: 20090202, end: 20090202
  4. LIORESAL [Concomitant]

REACTIONS (11)
  - DYSSTASIA [None]
  - JOINT RANGE OF MOTION DECREASED [None]
  - MYASTHENIC SYNDROME [None]
  - NEUROMUSCULAR BLOCKADE [None]
  - ASTHENIA [None]
  - MOTOR DYSFUNCTION [None]
  - NON-HODGKIN'S LYMPHOMA [None]
  - PARANEOPLASTIC SYNDROME [None]
  - RESPIRATORY FAILURE [None]
  - GAIT DISTURBANCE [None]
  - MUSCULAR WEAKNESS [None]
